FAERS Safety Report 7873851-9 (Version None)
Quarter: 2011Q4

REPORT INFORMATION
  Report Type: 
  Country: None (occurrence: None)
  Receive Date: 20111030
  Receipt Date: 20110511
  Transmission Date: 20120403
  Serious: No
  Sender: FDA-Public Use
  Company Number: US-AMGEN-USASP2011024574

PATIENT
  Age: 69 Year
  Sex: Female
  Weight: 79.365 kg

DRUGS (7)
  1. MULTIVITAMIN                       /00097801/ [Concomitant]
     Dosage: UNK
  2. HUMIRA [Concomitant]
     Dosage: 40 MG, Q2WK
     Dates: start: 20100101
  3. LATANOPROST [Concomitant]
     Dosage: UNK
  4. TRAMADOL HCL [Concomitant]
     Dosage: UNK
  5. ENBREL [Suspect]
     Indication: PRODUCT USED FOR UNKNOWN INDICATION
     Dosage: UNK
     Dates: end: 20070101
  6. AMLODIPINE BESYLATE [Concomitant]
     Dosage: UNK
  7. ACETAMINOPHEN [Concomitant]
     Dosage: UNK

REACTIONS (3)
  - BREAST DISCOMFORT [None]
  - PARAESTHESIA [None]
  - MUSCULOSKELETAL PAIN [None]
